FAERS Safety Report 18025106 (Version 4)
Quarter: 2023Q1

REPORT INFORMATION
  Report Type: Spontaneous
  Country: US (occurrence: US)
  Receive Date: 20200715
  Receipt Date: 20230213
  Transmission Date: 20230418
  Serious: No
  Sender: FDA-Public Use
  Company Number: US-PFIZER INC-2020270920

PATIENT
  Age: 68 Year
  Sex: Female

DRUGS (2)
  1. EUCRISA [Suspect]
     Active Substance: CRISABOROLE
     Indication: Eczema
     Dosage: PUT A LITTLE ON WHEN NEEDED
  2. EUCRISA [Suspect]
     Active Substance: CRISABOROLE
     Dosage: 1 DF, 2X/DAY
     Route: 061

REACTIONS (5)
  - Disease recurrence [Unknown]
  - Illness [Unknown]
  - Dysphonia [Unknown]
  - Oropharyngeal discomfort [Unknown]
  - Off label use [Unknown]
